FAERS Safety Report 6964409-4 (Version None)
Quarter: 2010Q3

REPORT INFORMATION
  Report Type: 
  Country: None (occurrence: None)
  Receive Date: 20100903
  Receipt Date: 20100826
  Transmission Date: 20110219
  Serious: Yes (Other)
  Sender: FDA-Public Use
  Company Number: GB-PFIZER INC-2010091744

PATIENT
  Age: 45 Year
  Sex: Male
  Weight: 82.5 kg

DRUGS (2)
  1. CHAMPIX [Suspect]
     Indication: SMOKING CESSATION THERAPY
     Dosage: 1 MG, 2X/DAY
     Route: 048
     Dates: start: 20100604, end: 20100714
  2. CANNABIS [Concomitant]
     Dosage: UNK

REACTIONS (1)
  - FALSE POSITIVE INVESTIGATION RESULT [None]
